FAERS Safety Report 8228888-7 (Version None)
Quarter: 2012Q1

REPORT INFORMATION
  Report Type: 
  Country: None (occurrence: None)
  Receive Date: 20120322
  Receipt Date: 20120312
  Transmission Date: 20120608
  Serious: No
  Sender: FDA-Public Use
  Company Number: US-B.I. PHARMACEUTICALS,INC./RIDGEFIELD-2012-BP-04676BP

PATIENT
  Age: 72 Year
  Sex: Female

DRUGS (4)
  1. SOTALOL HCL [Concomitant]
  2. PRADAXA [Suspect]
     Dosage: 300 MG
     Route: 048
     Dates: start: 20110401
  3. LEVOTHYROXINE SODIUM [Concomitant]
  4. ASPIRIN [Concomitant]
     Dates: start: 20120301

REACTIONS (2)
  - MUSCLE SPASMS [None]
  - CONTUSION [None]
